FAERS Safety Report 6504339-5 (Version None)
Quarter: 2009Q4

REPORT INFORMATION
  Report Type: 
  Country: None (occurrence: None)
  Receive Date: 20091215
  Receipt Date: 20091121
  Transmission Date: 20100525
  Serious: Yes (Congenital Anomaly)
  Sender: FDA-Public Use
  Company Number: AUR-APL-2009-01361

PATIENT
  Age: 1 Day
  Sex: Male
  Weight: 3.37 kg

DRUGS (6)
  1. ZIDOVUDINE [Suspect]
     Indication: HIV INFECTION
     Dosage: 600MG 1DAY TRANSPLACENT
     Route: 064
     Dates: start: 20040601, end: 20040720
  2. LAMIVUDINE [Suspect]
     Indication: HIV INFECTION
     Dosage: 1.2GM 1DAY TRANSPLACENT
     Route: 064
     Dates: start: 20040130, end: 20040601
  3. FOLIC ACID [Concomitant]
  4. KALETRA [Suspect]
     Indication: HIV INFECTION
     Route: 064
     Dates: start: 20040601
  5. NELFINAVIR MESYLATE [Suspect]
     Indication: HIV INFECTION
     Dosage: 2500MG DAILY TRANSPLACENTAL
     Route: 064
     Dates: start: 20040130, end: 20040601
  6. VIREAD [Suspect]
     Indication: HIV INFECTION
     Dosage: 300MG DAILY TRANSPLACENTAL
     Route: 064
     Dates: start: 20040606, end: 20040910

REACTIONS (10)
  - ABDOMINAL DISTENSION [None]
  - ABDOMINAL WALL ANOMALY [None]
  - CARDIAC MURMUR [None]
  - CONGENITAL ABDOMINAL HERNIA [None]
  - CONGENITAL ANOMALY [None]
  - CRYPTORCHISM [None]
  - EXOMPHALOS [None]
  - GASTROSCHISIS [None]
  - MATERNAL DRUGS AFFECTING FOETUS [None]
  - MUSCLE DISORDER [None]
